FAERS Safety Report 8283351-2 (Version None)
Quarter: 2012Q2

REPORT INFORMATION
  Report Type: 
  Country: None (occurrence: None)
  Receive Date: 20120413
  Receipt Date: 20120410
  Transmission Date: 20120825
  Serious: No
  Sender: FDA-Public Use
  Company Number: US-B.I. PHARMACEUTICALS,INC./RIDGEFIELD-2012-BP-06692BP

PATIENT
  Sex: Male

DRUGS (3)
  1. BYSTOLIC [Suspect]
     Indication: HYPERTENSION
     Dosage: 10 MG
     Route: 048
     Dates: start: 20120201, end: 20120301
  2. DILTIAZEM HCL [Concomitant]
     Indication: HEART RATE INCREASED
     Route: 048
     Dates: start: 20120301
  3. PRADAXA [Suspect]
     Indication: ATRIAL FIBRILLATION
     Dosage: 300 MG
     Route: 048
     Dates: start: 20120201

REACTIONS (3)
  - ARRHYTHMIA [None]
  - COUGH [None]
  - DYSPHONIA [None]
